FAERS Safety Report 13932050 (Version 5)
Quarter: 2018Q2

REPORT INFORMATION
  Report Type: Spontaneous
  Country: US (occurrence: US)
  Receive Date: 20170904
  Receipt Date: 20180521
  Transmission Date: 20180711
  Serious: No
  Sender: FDA-Public Use
  Company Number: US-PFIZER INC-2017377612

PATIENT

DRUGS (1)
  1. BACTERIOSTATIC SODIUM CHLORIDE [Suspect]
     Active Substance: SODIUM CHLORIDE
     Dosage: 1000 ML BAG-A PATIENT DOES NOT GET AN ENTIRE BAG, JUST A PART OF IT^

REACTIONS (2)
  - Infusion site extravasation [Unknown]
  - Product quality issue [Unknown]
